FAERS Safety Report 10010342 (Version 1)
Quarter: 2014Q1

REPORT INFORMATION
  Report Type: Spontaneous
  Country: KP (occurrence: KR)
  Receive Date: 20140314
  Receipt Date: 20140314
  Transmission Date: 20141002
  Serious: Yes (Hospitalization, Other)
  Sender: FDA-Public Use
  Company Number: KR-ACCORD-022484

PATIENT
  Age: 31 Year
  Sex: Female

DRUGS (2)
  1. QUETIAPINE [Suspect]
     Indication: MANIA
     Dosage: AFTER DELIVERY THE DOSE WAS INCREASED UP TO 1200MG/DAY.
  2. OLANZAPINE [Suspect]
     Indication: MANIA
     Dosage: AT WEEK 25 OF GESTATION PATIENT RECEIVED 7.5 MG?AT 33 WEEKS OF GESTATION 20 MG

REACTIONS (2)
  - Oligohydramnios [Unknown]
  - Exposure during pregnancy [Unknown]
